FAERS Safety Report 8347669-7 (Version None)
Quarter: 2012Q2

REPORT INFORMATION
  Report Type: 
  Country: None (occurrence: None)
  Receive Date: 20120509
  Receipt Date: 20120504
  Transmission Date: 20120825
  Serious: Yes (Disabling)
  Sender: FDA-Public Use
  Company Number: US-MERCK-1205USA00975

PATIENT
  Sex: Female

DRUGS (3)
  1. FOSAMAX [Suspect]
     Route: 048
     Dates: start: 19950101, end: 20100101
  2. FOSAMAX PLUS D [Suspect]
     Route: 048
     Dates: start: 19950101, end: 20100101
  3. FOSAMAX [Suspect]
     Route: 048
     Dates: start: 19950101, end: 20100101

REACTIONS (3)
  - IMPAIRED HEALING [None]
  - FEMUR FRACTURE [None]
  - LOW TURNOVER OSTEOPATHY [None]
